FAERS Safety Report 9590633 (Version 1)
Quarter: 2013Q4

REPORT INFORMATION
  Report Type: Spontaneous
  Country: US (occurrence: US)
  Receive Date: 20131003
  Receipt Date: 20131003
  Transmission Date: 20140711
  Serious: No
  Sender: FDA-Public Use
  Company Number: US-AMGEN-USASP2012078239

PATIENT
  Sex: Female
  Weight: 56.69 kg

DRUGS (7)
  1. ENBREL [Suspect]
     Indication: PSORIATIC ARTHROPATHY
     Dosage: 25 MG, 2 TIMES/WK
     Route: 058
  2. LEXAPRO [Concomitant]
     Dosage: 20 MG, UNK
  3. MELOXICAM [Concomitant]
     Dosage: 7.5 MG, UNK
  4. COZAAR [Concomitant]
     Dosage: 25 MG, UNK
  5. PREMPRO [Concomitant]
     Dosage: 0.3 - 1.5 UNK, UNK
  6. SYMBICORT [Concomitant]
     Dosage: 80- 4.5 UNK, UNK
  7. BUPROPION [Concomitant]
     Dosage: 100 MG, UNK

REACTIONS (1)
  - Injection site induration [Unknown]
